FAERS Safety Report 9322611 (Version 1)
Quarter: 2013Q2

REPORT INFORMATION
  Report Type: Spontaneous
  Country: FR (occurrence: FR)
  Receive Date: 20130531
  Receipt Date: 20130531
  Transmission Date: 20140414
  Serious: Yes (Other)
  Sender: FDA-Public Use
  Company Number: FR-GILEAD-2012-0054136

PATIENT
  Age: 35 Year
  Sex: Female

DRUGS (1)
  1. ATRIPLA [Suspect]
     Indication: HIV INFECTION
     Dosage: 1 DF, QD
     Route: 048
     Dates: start: 20120406, end: 20121221

REACTIONS (3)
  - Mixed liver injury [Recovered/Resolved]
  - Antiviral drug level above therapeutic [Recovered/Resolved]
  - Rash [Recovered/Resolved]
